FAERS Safety Report 5848279-3 (Version None)
Quarter: 2008Q3

REPORT INFORMATION
  Report Type: 
  Country: None (occurrence: None)
  Receive Date: 20080814
  Receipt Date: 20080814
  Transmission Date: 20090109
  Serious: Yes (Hospitalization)
  Sender: FDA-Public Use
  Company Number: None

PATIENT
  Sex: Male
  Weight: 81.8 kg

DRUGS (3)
  1. METHOTREXATE SODIUM [Suspect]
     Dosage: 12500 MG
  2. RITUXIMAB (MOAB C2B8 ANT CD20, CHIMERIC) [Suspect]
     Dosage: 675 MG
  3. DEXAMETHOSOME [Concomitant]

REACTIONS (9)
  - CSF GLUCOSE DECREASED [None]
  - CSF PROTEIN INCREASED [None]
  - CSF WHITE BLOOD CELL COUNT POSITIVE [None]
  - DYSPNOEA [None]
  - HEADACHE [None]
  - HYDROCEPHALUS [None]
  - NAUSEA [None]
  - PULMONARY CONGESTION [None]
  - PYREXIA [None]
